FAERS Safety Report 9276400 (Version 1)
Quarter: 2013Q2

REPORT INFORMATION
  Report Type: Spontaneous
  Country: US (occurrence: US)
  Receive Date: 20130507
  Receipt Date: 20130507
  Transmission Date: 20140414
  Serious: No
  Sender: FDA-Public Use
  Company Number: US-009507513-1305USA001042

PATIENT
  Age: 49 Year
  Sex: Female

DRUGS (5)
  1. SAPHRIS [Suspect]
     Indication: SCHIZOPHRENIA
     Dosage: 10 MG, UNK
     Route: 060
     Dates: end: 201304
  2. SAPHRIS [Suspect]
     Dosage: 5 MG, UNK
     Route: 060
  3. XANAX [Concomitant]
  4. TRAZODONE HYDROCHLORIDE [Concomitant]
  5. SEROQUEL [Concomitant]

REACTIONS (1)
  - Toothache [Unknown]
